FAERS Safety Report 7141546-5 (Version None)
Quarter: 2010Q4

REPORT INFORMATION
  Report Type: 
  Country: None (occurrence: None)
  Receive Date: 20101119
  Receipt Date: 20100812
  Transmission Date: 20110411
  Serious: Yes (Hospitalization)
  Sender: FDA-Public Use
  Company Number: UTC-001332

PATIENT
  Age: 59 Year
  Sex: Male
  Weight: 172.4 kg

DRUGS (21)
  1. TYVASO [Suspect]
     Dosage: (144 MCG, 1 D), INHALATION
     Route: 055
     Dates: start: 20100606
  2. ZOCOR [Concomitant]
  3. ACETAMINOPHEN [Concomitant]
  4. NOVOLOG [Concomitant]
  5. LEVEMIR [Concomitant]
  6. IRON (IRON) [Concomitant]
  7. LASIX [Concomitant]
  8. SINGULAIR [Concomitant]
  9. NEURONTIN [Concomitant]
  10. COLCHICINE [Concomitant]
  11. TORSEMIDE [Concomitant]
  12. POTASSIUM CHLORIDE [Concomitant]
  13. DIOVAN [Concomitant]
  14. PRILOSEC (OMEPRAZOLE) [Concomitant]
  15. WARFARIN (WARFARIN) [Concomitant]
  16. ACARBOSE [Concomitant]
  17. VITAMIN D [Concomitant]
  18. GLIMEPIRIDE [Concomitant]
  19. PROPYLTHIOURACIL [Concomitant]
  20. METOPROLOL SUCCINATE [Concomitant]
  21. LORTAB (VICODIN) [Concomitant]

REACTIONS (2)
  - CHEST DISCOMFORT [None]
  - PNEUMONIA [None]
